FAERS Safety Report 9100343 (Version 2)
Quarter: 2013Q3

REPORT INFORMATION
  Report Type: Report from Study
  Country: DE (occurrence: DE)
  Receive Date: 20130215
  Receipt Date: 20130827
  Transmission Date: 20140515
  Serious: Yes (Other)
  Sender: FDA-Public Use
  Company Number: DE-BRISTOL-MYERS SQUIBB COMPANY-17355157

PATIENT
  Age: 58 Year
  Sex: Male
  Weight: 107 kg

DRUGS (17)
  1. CARBOPLATIN [Suspect]
     Indication: NON-SMALL CELL LUNG CANCER
     Dosage: LAST DOSE ON 12DEC2012
     Route: 042
     Dates: start: 20121030
  2. PACLITAXEL [Suspect]
     Indication: NON-SMALL CELL LUNG CANCER
     Dosage: LAST DOSE ON 12DEC2012
     Route: 042
     Dates: start: 20121030
  3. BEVACIZUMAB [Suspect]
     Indication: NON-SMALL CELL LUNG CANCER
     Dosage: LAST DOSE ON 12DEC2012
     Route: 042
     Dates: start: 20121030
  4. ASPIRIN [Concomitant]
     Indication: CORONARY ARTERY DISEASE
     Route: 048
     Dates: start: 201107
  5. ASPIRIN [Concomitant]
     Indication: HYPERTENSION
     Route: 048
     Dates: start: 201107
  6. BISOPROLOL [Concomitant]
     Indication: HYPERTENSION
     Route: 048
     Dates: start: 201107
  7. BISOPROLOL [Concomitant]
     Indication: CORONARY ARTERY DISEASE
     Route: 048
     Dates: start: 201107
  8. SIMVASTATIN [Concomitant]
     Indication: CORONARY ARTERY DISEASE
     Route: 048
     Dates: start: 201107
  9. ONDANSETRON [Concomitant]
     Indication: CHEMOTHERAPY
     Dosage: 20NOV-20NOV12,8MG?12DEC-12DEC12,20MG?03JAN-03JAN13,8MG
     Route: 042
     Dates: start: 20121030
  10. DEXAMETHASONE [Concomitant]
     Indication: CHEMOTHERAPY
     Dosage: 30OCT12-UNK,20MG?31OCT12-UNK,4MG,ORAL?20NOV-20NOV12,2MG?03JAN-03JAN13,20MG
     Route: 042
     Dates: start: 20121030
  11. DEXAMETHASONE [Concomitant]
     Indication: PROPHYLAXIS OF NAUSEA AND VOMITING
     Dosage: 30OCT12-UNK,20MG?31OCT12-UNK,4MG,ORAL?20NOV-20NOV12,2MG?03JAN-03JAN13,20MG
     Route: 042
     Dates: start: 20121030
  12. TAVEGIL [Concomitant]
     Indication: CHEMOTHERAPY
     Dosage: 30OCT12-UNK,2MG?20NOV-20NOV12?12DEC-12DEC12,2MG?03JAN-03JAN13,2MG
     Route: 042
     Dates: start: 20121030
  13. RANITIDINE [Concomitant]
     Indication: CHEMOTHERAPY
     Dosage: 30OCT12-UNK?20NOV-20NOV12?12DEC-12DEC12?03JAN-03JAN13
     Route: 042
     Dates: start: 20121030
  14. IBUPROFEN [Concomitant]
     Indication: PAIN IN EXTREMITY
     Route: 048
     Dates: start: 20121101
  15. PANTOZOL [Concomitant]
     Indication: GASTROOESOPHAGEAL REFLUX DISEASE
     Dosage: 22NOV12-02JAN13,40MG?03JAN13-UNK,20MG
     Route: 048
     Dates: start: 20121122
  16. PANTOZOL [Concomitant]
     Indication: DUODENITIS
     Dosage: 22NOV12-02JAN13,40MG?03JAN13-UNK,20MG
     Route: 048
     Dates: start: 20121122
  17. PANTOZOL [Concomitant]
     Indication: GASTRITIS
     Dosage: 22NOV12-02JAN13,40MG?03JAN13-UNK,20MG
     Route: 048
     Dates: start: 20121122

REACTIONS (1)
  - Colitis [Recovered/Resolved]
